FAERS Safety Report 25544722 (Version 2)
Quarter: 2025Q3

REPORT INFORMATION
  Report Type: Spontaneous
  Country: US (occurrence: GB)
  Receive Date: 20250711
  Receipt Date: 20250723
  Transmission Date: 20251020
  Serious: Yes (Other)
  Sender: SANOFI AVENTIS
  Company Number: GB-SA-2025SA194490

PATIENT

DRUGS (1)
  1. LEMTRADA [Suspect]
     Active Substance: ALEMTUZUMAB
     Indication: Multiple sclerosis
     Route: 065

REACTIONS (3)
  - Graves^ disease [Unknown]
  - Eye disorder [Unknown]
  - Premature menopause [Unknown]
